FAERS Safety Report 7080891-9 (Version None)
Quarter: 2010Q4

REPORT INFORMATION
  Report Type: 
  Country: None (occurrence: None)
  Receive Date: 20101103
  Receipt Date: 20101028
  Transmission Date: 20110411
  Serious: Yes (Congenital Anomaly)
  Sender: FDA-Public Use
  Company Number: US-SANOFI-AVENTIS-2010SA066147

PATIENT
  Age: 0 Day

DRUGS (5)
  1. AMBIEN [Suspect]
     Route: 064
     Dates: start: 20090901, end: 20100201
  2. LAMOTRIGINE [Suspect]
     Route: 064
     Dates: end: 20100201
  3. NEURONTIN [Suspect]
     Route: 064
     Dates: end: 20100201
  4. ADDERALL XR 10 [Suspect]
     Route: 064
     Dates: start: 20070101, end: 20100201
  5. ANTI-SMOKING AGENTS [Suspect]
     Dosage: 0.1MG TO 0.2MG ONE TO TWO TIMES PER DAY
     Route: 064
     Dates: end: 20100201

REACTIONS (2)
  - CLEFT PALATE [None]
  - DRUG EXPOSURE DURING PREGNANCY [None]
